FAERS Safety Report 23306071 (Version 1)
Quarter: 2023Q4

REPORT INFORMATION
  Report Type: Spontaneous
  Country: ES (occurrence: ES)
  Receive Date: 20231218
  Receipt Date: 20231218
  Transmission Date: 20240110
  Serious: Yes (Life-Threatening, Hospitalization)
  Sender: FDA-Public Use
  Company Number: None

PATIENT
  Age: 17 Month
  Sex: Female
  Weight: 8 kg

DRUGS (2)
  1. VALGANCICLOVIR [Suspect]
     Active Substance: VALGANCICLOVIR
     Indication: Epstein-Barr virus infection
     Dosage: STRENGTH: 50 MG/ML, FREQUENCY: BID?DAILY DOSE: 370 MILLIGRAM
     Route: 048
     Dates: start: 20230808, end: 20230818
  2. SULFAMETHOXAZOLE\TRIMETHOPRIM [Suspect]
     Active Substance: SULFAMETHOXAZOLE\TRIMETHOPRIM
     Indication: Antibiotic prophylaxis
     Dosage: STRENGTH: 40 MG/ML+MG/ML, FREQUENCY: BID, DOSAGE FORM: ORAL SOLUTION/SUSPENSION
     Route: 048
     Dates: start: 20230523, end: 20230818

REACTIONS (4)
  - Agranulocytosis [Recovered/Resolved]
  - Streptococcal bacteraemia [Recovered/Resolved]
  - Pyrexia [Recovered/Resolved]
  - Off label use [Unknown]

NARRATIVE: CASE EVENT DATE: 20230818
